FAERS Safety Report 5272435-9 (Version None)
Quarter: 2007Q1

REPORT INFORMATION
  Report Type: 
  Country: None (occurrence: None)
  Receive Date: 20070322
  Receipt Date: 20070313
  Transmission Date: 20070707
  Serious: Yes (Life-Threatening)
  Sender: FDA-Public Use
  Company Number: FR-BAXTER-2007BH002952

PATIENT
  Age: 70 Year
  Sex: Male

DRUGS (1)
  1. IMMUNE GLOBULIN INTRAVENOUS (HUMAN) [Suspect]
     Indication: IMMUNODEFICIENCY
     Dosage: DOSE UNIT:UNKNOWN
     Route: 065
     Dates: start: 20070201, end: 20070201

REACTIONS (1)
  - ANAPHYLACTIC SHOCK [None]
